FAERS Safety Report 6717445-7 (Version None)
Quarter: 2010Q2

REPORT INFORMATION
  Report Type: 
  Country: None (occurrence: None)
  Receive Date: 20100510
  Receipt Date: 20100429
  Transmission Date: 20101027
  Serious: Yes (Other)
  Sender: FDA-Public Use
  Company Number: CA-JNJFOC-20100500604

PATIENT
  Sex: Female
  Weight: 70.8 kg

DRUGS (3)
  1. REMICADE [Suspect]
     Indication: RHEUMATOID ARTHRITIS
     Route: 042
  2. REMICADE [Suspect]
     Dosage: 38TH INFUSION
     Route: 042
  3. METHOTREXATE [Concomitant]

REACTIONS (2)
  - FOOT OPERATION [None]
  - INFECTION [None]
